FAERS Safety Report 23884318 (Version 1)
Quarter: 2024Q2

REPORT INFORMATION
  Report Type: Spontaneous
  Country: US (occurrence: US)
  Receive Date: 20240522
  Receipt Date: 20240522
  Transmission Date: 20240716
  Serious: Yes (Hospitalization, Other)
  Sender: FDA-Public Use
  Company Number: US-BEH-2024172153

PATIENT
  Age: 45 Year
  Sex: Female

DRUGS (10)
  1. ZEMAIRA [Suspect]
     Active Substance: .ALPHA.1-PROTEINASE INHIBITOR HUMAN
     Indication: Body mass index increased
     Dosage: 90 MG/KG, QW
     Route: 042
     Dates: start: 202310
  2. VALIUM [Concomitant]
     Active Substance: DIAZEPAM
     Dosage: UNK
  3. MIDODRINE HYDROCHLORIDE [Concomitant]
     Active Substance: MIDODRINE HYDROCHLORIDE
     Dosage: UNK
  4. ALBUTEROL SULFATE [Concomitant]
     Active Substance: ALBUTEROL SULFATE
  5. Citirizine [Concomitant]
     Dosage: UNK
  6. FLUTICASONE PROPIONATE [Concomitant]
     Active Substance: FLUTICASONE PROPIONATE
     Dosage: UNK
  7. LEXAPRO [Concomitant]
     Active Substance: ESCITALOPRAM OXALATE
  8. MONTELUKAST AN [Concomitant]
     Dosage: UNK
  9. VITAMINS [Concomitant]
     Active Substance: VITAMINS
  10. TRELEGY ELLIPTA [Concomitant]
     Active Substance: FLUTICASONE FUROATE\UMECLIDINIUM BROMIDE\VILANTEROL TRIFENATATE
     Dosage: UNK

REACTIONS (6)
  - Alpha-1 antitrypsin deficiency [Unknown]
  - Oxygen saturation decreased [Unknown]
  - Off label use [Unknown]
  - Alpha-1 antitrypsin deficiency [Unknown]
  - Sputum increased [Unknown]
  - Cough [Unknown]

NARRATIVE: CASE EVENT DATE: 20240201
